FAERS Safety Report 9306868 (Version 1)
Quarter: 2013Q2

REPORT INFORMATION
  Report Type: Spontaneous
  Country: JP (occurrence: JP)
  Receive Date: 20130523
  Receipt Date: 20130523
  Transmission Date: 20140414
  Serious: Yes (Hospitalization)
  Sender: FDA-Public Use
  Company Number: PHHY2013JP050475

PATIENT
  Age: 25 Year
  Sex: Female

DRUGS (16)
  1. PARACETAMOL [Suspect]
  2. CEFTRIAXONE [Suspect]
  3. LOXOPROFEN [Suspect]
  4. LEVOFLOXACIN [Concomitant]
  5. DICLOFENAC SODIUM [Concomitant]
  6. AZITHROMYCIN [Concomitant]
  7. AMOXICILLIN [Concomitant]
  8. INDOMETHACIN [Concomitant]
  9. FEXOFENADINE HYDROCHLORIDE [Concomitant]
  10. FAMOTIDINE [Concomitant]
  11. EBASTINE [Concomitant]
  12. MINOCYCLINE HYDROCHLORIDE [Concomitant]
  13. SULFAMETHOXAZOLE W/TRIMETHOPRIM [Concomitant]
  14. ALENDRONATE [Concomitant]
  15. ISONIAZID [Concomitant]
  16. RABEPRAZOLE SODIUM [Concomitant]

REACTIONS (8)
  - Drug eruption [Recovering/Resolving]
  - Rash maculo-papular [Recovering/Resolving]
  - Urticaria [Recovering/Resolving]
  - Erythema [Recovering/Resolving]
  - Pruritus [Recovering/Resolving]
  - Lymphadenopathy [Recovering/Resolving]
  - Hepatosplenomegaly [Recovering/Resolving]
  - Hepatic function abnormal [Recovering/Resolving]
